FAERS Safety Report 11300311 (Version 1)
Quarter: 2015Q3

REPORT INFORMATION
  Report Type: Spontaneous
  Country: US (occurrence: US)
  Receive Date: 20150722
  Receipt Date: 20150722
  Transmission Date: 20151125
  Serious: No
  Sender: FDA-Public Use
  Company Number: US-ELI_LILLY_AND_COMPANY-US201309000979

PATIENT
  Sex: Male

DRUGS (1)
  1. HUMATROPE [Suspect]
     Active Substance: SOMATROPIN
     Indication: FAILURE TO THRIVE
     Dosage: 1.1 MG, UNKNOWN
     Route: 065
     Dates: start: 201305

REACTIONS (2)
  - Underdose [Unknown]
  - Drug dose omission [Unknown]
